FAERS Safety Report 9908057 (Version 1)
Quarter: 2014Q1

REPORT INFORMATION
  Report Type: Spontaneous
  Country: US (occurrence: None)
  Receive Date: 20140212
  Receipt Date: 20140212
  Transmission Date: 20141002
  Serious: Yes (Disabling)
  Sender: FDA-Public Use
  Company Number: None

PATIENT
  Age: 30 Year
  Sex: Female
  Weight: 54.43 kg

DRUGS (1)
  1. CIPROFLOXACIN 250 MG BAYER [Suspect]
     Indication: URINARY TRACT INFECTION
     Dosage: 2 PILLS TWICE DAILY
     Route: 048
     Dates: start: 20130312, end: 20130314

REACTIONS (6)
  - Tendonitis [None]
  - Neuropathy peripheral [None]
  - Arthralgia [None]
  - Plantar fasciitis [None]
  - Tinnitus [None]
  - Musculoskeletal disorder [None]
